FAERS Safety Report 5128562-X (Version None)
Quarter: 2006Q4

REPORT INFORMATION
  Report Type: 
  Country: None (occurrence: None)
  Receive Date: 20061017
  Receipt Date: 20061011
  Transmission Date: 20070319
  Serious: Yes (Death)
  Sender: FDA-Public Use
  Company Number: US-GLAXOSMITHKLINE-A0623577A

PATIENT
  Age: 56 Year
  Sex: Female

DRUGS (4)
  1. ADVAIR DISKUS 100/50 [Suspect]
     Indication: ASTHMA
     Dosage: 1PUFF TWICE PER DAY
     Route: 055
     Dates: start: 20050117, end: 20060209
  2. PREVACID [Concomitant]
  3. COMBIVENT [Concomitant]
  4. HYOSCINE HBR HYT [Concomitant]

REACTIONS (9)
  - AGONAL DEATH STRUGGLE [None]
  - ASTHMA [None]
  - CARDIAC ARREST [None]
  - CARDIO-RESPIRATORY ARREST [None]
  - CYANOSIS [None]
  - HYPOXIA [None]
  - METABOLIC ACIDOSIS [None]
  - MULTI-ORGAN FAILURE [None]
  - RESPIRATORY ACIDOSIS [None]
